FAERS Safety Report 21870682 (Version 1)
Quarter: 2023Q1

REPORT INFORMATION
  Report Type: Spontaneous
  Country: FR (occurrence: FR)
  Receive Date: 20230117
  Receipt Date: 20230117
  Transmission Date: 20230418
  Serious: Yes (Other)
  Sender: FDA-Public Use
  Company Number: FR-CELLTRION INC.-2022FR022244

PATIENT

DRUGS (9)
  1. INFLIXIMAB [Suspect]
     Active Substance: INFLIXIMAB
     Indication: Cardiac sarcoidosis
     Dosage: 5 MG/KG
     Route: 065
  2. INFLIXIMAB [Suspect]
     Active Substance: INFLIXIMAB
     Dosage: 5 MG/KG, EVERY 4 WEEKS
  3. INFLIXIMAB [Suspect]
     Active Substance: INFLIXIMAB
     Dosage: 5 MG/KG (WEEK ZERO)
  4. INFLIXIMAB [Suspect]
     Active Substance: INFLIXIMAB
     Dosage: 5 MG/KG (WEEK TWO)
  5. ADALIMUMAB [Suspect]
     Active Substance: ADALIMUMAB
     Indication: Cardiac sarcoidosis
     Dosage: 40 MG, EVERY 2 WEEKS
     Route: 058
  6. CYCLOPHOSPHAMIDE [Concomitant]
     Active Substance: CYCLOPHOSPHAMIDE
     Indication: Cardiac sarcoidosis
     Dosage: 1000 MG, EVERY 1 MONTH
  7. METHOTREXATE [Concomitant]
     Active Substance: METHOTREXATE
     Indication: Cardiac sarcoidosis
     Dosage: 15 TO 20MG, EVERY 1 WEEK
  8. PREDNISONE [Concomitant]
     Active Substance: PREDNISONE
     Indication: Cardiac sarcoidosis
     Dosage: UNKNOWN, TAPERED OFF WITHIN 12 TO 14 MONTHS
  9. PREDNISONE [Concomitant]
     Active Substance: PREDNISONE
     Dosage: 75 MG, EVERY 1 DAY (CORTICOSTEROID)

REACTIONS (3)
  - Cardiac sarcoidosis [Unknown]
  - Pharyngitis [Unknown]
  - Off label use [Unknown]
